FAERS Safety Report 18173839 (Version 31)
Quarter: 2023Q2

REPORT INFORMATION
  Report Type: Spontaneous
  Country: CA (occurrence: CA)
  Receive Date: 20200820
  Receipt Date: 20230614
  Transmission Date: 20230722
  Serious: Yes (Other)
  Sender: FDA-Public Use
  Company Number: CA-CELLTRION INC.-2020CA023971

PATIENT

DRUGS (25)
  1. INFLECTRA [Suspect]
     Active Substance: INFLIXIMAB-DYYB
     Indication: Crohn^s disease
     Dosage: 5 MG/KG (450 MG), AT 0, 2, 6, THEN EVERY 8 WEEKS (WEEK 0 DOSE)
     Route: 042
     Dates: start: 20200619, end: 20200716
  2. INFLECTRA [Suspect]
     Active Substance: INFLIXIMAB-DYYB
     Dosage: 5 MG/KG (450 MG), AT 0, 2, 6, THEN EVERY 8 WEEKS (WEEK 0 DOSE)
     Route: 042
     Dates: start: 20200619, end: 20200716
  3. INFLECTRA [Suspect]
     Active Substance: INFLIXIMAB-DYYB
     Dosage: 5 MG/KG (450 MG), AT 0, 2, 6, THEN EVERY 8 WEEKS (WEEK 2 DOSE)
     Route: 042
     Dates: start: 20200716
  4. INFLECTRA [Suspect]
     Active Substance: INFLIXIMAB-DYYB
     Dosage: 5 MG/KG AT 6 WEEKS, THEN EVERY 8 WEEKS (WEEK 6 DOSE)
     Route: 042
     Dates: start: 20200826, end: 20210826
  5. INFLECTRA [Suspect]
     Active Substance: INFLIXIMAB-DYYB
     Dosage: 5 MG/KG AT 6 WEEKS, THEN EVERY 8 WEEKS
     Route: 042
     Dates: start: 20201027
  6. INFLECTRA [Suspect]
     Active Substance: INFLIXIMAB-DYYB
     Dosage: 5 MG/KG EVERY 8 WEEKS
     Route: 042
     Dates: start: 20201203
  7. INFLECTRA [Suspect]
     Active Substance: INFLIXIMAB-DYYB
     Dosage: 5 MG/KG EVERY 8 WEEKS
     Route: 042
     Dates: start: 20210208
  8. INFLECTRA [Suspect]
     Active Substance: INFLIXIMAB-DYYB
     Dosage: 5 MG/KG EVERY 8 WEEKS
     Route: 042
     Dates: start: 20210406
  9. INFLECTRA [Suspect]
     Active Substance: INFLIXIMAB-DYYB
     Dosage: 5 MG/KG, EVERY 8 WEEKS
     Route: 042
     Dates: start: 20210406
  10. INFLECTRA [Suspect]
     Active Substance: INFLIXIMAB-DYYB
     Dosage: 5 MG/KG, EVERY 8 WEEKS
     Route: 042
     Dates: start: 20210616
  11. INFLECTRA [Suspect]
     Active Substance: INFLIXIMAB-DYYB
     Dosage: 5 MG/KG, EVERY 8 WEEKS
     Route: 042
     Dates: start: 20210811
  12. INFLECTRA [Suspect]
     Active Substance: INFLIXIMAB-DYYB
     Dosage: 5 MG/KG, EVERY 8 WEEKS
     Route: 042
     Dates: start: 20211021
  13. INFLECTRA [Suspect]
     Active Substance: INFLIXIMAB-DYYB
     Dosage: 5 MG/KG, EVERY 8 WEEKS
     Route: 042
     Dates: start: 20211027
  14. INFLECTRA [Suspect]
     Active Substance: INFLIXIMAB-DYYB
     Dosage: 5 MG/KG, EVERY 6 WEEKS, THEN EVERY 8 WEEKS
     Route: 042
     Dates: start: 20211214
  15. INFLECTRA [Suspect]
     Active Substance: INFLIXIMAB-DYYB
     Dosage: 5 MG/KG, EVERY 6 WEEKS, THEN EVERY 8 WEEKS
     Route: 042
     Dates: start: 20220210
  16. INFLECTRA [Suspect]
     Active Substance: INFLIXIMAB-DYYB
     Dosage: 5 MG/KG, EVERY 6 WEEKS, THEN EVERY 8 WEEKS
     Route: 042
     Dates: start: 20220407
  17. INFLECTRA [Suspect]
     Active Substance: INFLIXIMAB-DYYB
     Dosage: 555 MG
     Route: 042
     Dates: start: 20220602, end: 20220602
  18. INFLECTRA [Suspect]
     Active Substance: INFLIXIMAB-DYYB
     Dosage: 5 MG/KG, EVERY 8 WEEKS
     Route: 042
     Dates: start: 20220728
  19. INFLECTRA [Suspect]
     Active Substance: INFLIXIMAB-DYYB
     Dosage: 5 MG/KG, EVERY 8 WEEKS
     Route: 042
     Dates: start: 20221208
  20. INFLECTRA [Suspect]
     Active Substance: INFLIXIMAB-DYYB
     Dosage: 5 MG/KG, EVERY 8 WEEKS
     Route: 042
     Dates: start: 20230202
  21. INFLECTRA [Suspect]
     Active Substance: INFLIXIMAB-DYYB
     Dosage: 5 MG/KG, 9 WEEKS 5 DAYS (WHICH TOOK PLACE ON 30MAR2023)
     Route: 042
     Dates: start: 20230606
  22. FOLIC ACID [Concomitant]
     Active Substance: FOLIC ACID
     Dosage: 1 DF UNKNOWN DOSE
  23. SULFASALAZINE [Concomitant]
     Active Substance: SULFASALAZINE
     Dosage: 1 DF
     Route: 042
  24. SULFASALAZINE [Concomitant]
     Active Substance: SULFASALAZINE
     Dosage: 1 DF UNKNOWN DOSE
  25. TYLENOL [Concomitant]
     Active Substance: ACETAMINOPHEN
     Dosage: 1 DF, AS NEEDED (PRN UNKNOWN DOSE,DOSAGE INFO UNAVAILABLE)

REACTIONS (25)
  - COVID-19 [Unknown]
  - Immobile [Recovering/Resolving]
  - Condition aggravated [Recovered/Resolved]
  - Influenza like illness [Recovered/Resolved]
  - Nasopharyngitis [Unknown]
  - Pyrexia [Recovered/Resolved]
  - Chills [Unknown]
  - Malaise [Unknown]
  - Cough [Recovered/Resolved]
  - Feeling abnormal [Unknown]
  - Sneezing [Unknown]
  - Rhinorrhoea [Unknown]
  - Blood pressure increased [Unknown]
  - Weight increased [Unknown]
  - Influenza like illness [Recovering/Resolving]
  - Arthropathy [Recovering/Resolving]
  - Arthralgia [Recovered/Resolved]
  - Stress [Unknown]
  - Pyrexia [Unknown]
  - Oropharyngeal pain [Unknown]
  - Cough [Recovering/Resolving]
  - Off label use [Unknown]
  - Intentional product use issue [Unknown]
  - Inappropriate schedule of product administration [Unknown]
  - Off label use [Unknown]

NARRATIVE: CASE EVENT DATE: 20200101
